FAERS Safety Report 9394947 (Version 1)
Quarter: 2013Q3

REPORT INFORMATION
  Report Type: Report from Study
  Country: JP (occurrence: JP)
  Receive Date: 20130711
  Receipt Date: 20130711
  Transmission Date: 20140515
  Serious: Yes (Hospitalization, Other)
  Sender: FDA-Public Use
  Company Number: JP-AMGEN-JPNCT2013048382

PATIENT
  Age: 79 Year
  Sex: Male
  Weight: 48 kg

DRUGS (31)
  1. DARBEPOETIN ALFA [Suspect]
     Indication: NEPHROGENIC ANAEMIA
     Dosage: 30 MUG, Q2WK
     Route: 040
     Dates: start: 20110613, end: 20110627
  2. DARBEPOETIN ALFA [Suspect]
     Dosage: 40 MUG, Q4WK
     Route: 040
     Dates: start: 20110714, end: 20111006
  3. DARBEPOETIN ALFA [Suspect]
     Dosage: 60 MUG, Q2WK
     Route: 040
     Dates: start: 20111125, end: 20111222
  4. DARBEPOETIN ALFA [Suspect]
     Dosage: 60 MUG, Q4WK
     Route: 040
     Dates: start: 20120123, end: 20120322
  5. DARBEPOETIN ALFA [Suspect]
     Dosage: 40 MUG, QD
     Route: 040
     Dates: start: 20120426, end: 20120426
  6. DARBEPOETIN ALFA [Suspect]
     Dosage: 40 MUG, QD
     Route: 040
     Dates: start: 20120531, end: 20120531
  7. DARBEPOETIN ALFA [Suspect]
     Dosage: 40 MUG, QD
     Route: 040
     Dates: start: 20120705, end: 20120705
  8. DARBEPOETIN ALFA [Suspect]
     Dosage: 40 MUG, QD
     Route: 040
     Dates: start: 20120809, end: 20120809
  9. DARBEPOETIN ALFA [Suspect]
     Dosage: 40 MUG, QD
     Route: 040
     Dates: start: 20120913, end: 20120913
  10. DARBEPOETIN ALFA [Suspect]
     Dosage: 40 MUG, QD
     Route: 040
     Dates: start: 20121018, end: 20121018
  11. DARBEPOETIN ALFA [Suspect]
     Dosage: 40 MUG, QD
     Route: 040
     Dates: start: 20121122, end: 20121122
  12. DARBEPOETIN ALFA [Suspect]
     Dosage: 40 MUG, Q4WK
     Route: 040
     Dates: start: 20121227, end: 20130122
  13. DARBEPOETIN ALFA [Suspect]
     Dosage: 60 MUG, Q2WK
     Route: 040
     Dates: start: 20130129, end: 20130214
  14. DARBEPOETIN ALFA [Suspect]
     Dosage: 40 MUG, QD
     Route: 040
     Dates: start: 20130321, end: 20130321
  15. DARBEPOETIN ALFA [Suspect]
     Dosage: 40 MUG, UNK
     Route: 040
     Dates: start: 20130530
  16. PREDONINE [Concomitant]
     Indication: NEPHRITIS
     Dosage: UNK
     Route: 048
  17. HALFDIGOXIN [Concomitant]
     Dosage: UNK
     Route: 048
  18. GASTER D [Concomitant]
     Dosage: UNK
     Route: 048
  19. ZYLORIC [Concomitant]
     Dosage: UNK
     Route: 048
  20. GENINAX [Concomitant]
     Dosage: UNK
     Route: 048
  21. BLOPRESS [Concomitant]
     Dosage: UNK
     Route: 048
  22. FERROMIA [Concomitant]
     Dosage: UNK
     Route: 048
  23. GASMOTIN [Concomitant]
     Dosage: UNK
     Route: 048
  24. PURSENNID [Concomitant]
     Dosage: UNK
     Route: 048
  25. ALOSENN [Concomitant]
     Dosage: UNK
     Route: 048
  26. ZOSYN [Concomitant]
     Dosage: UNK
     Route: 041
  27. DORNER [Concomitant]
     Dosage: UNK
     Route: 048
  28. WARFARIN [Concomitant]
     Dosage: UNK
     Route: 048
  29. LAC-B [Concomitant]
     Dosage: UNK
     Route: 048
  30. KLARICID [Concomitant]
     Dosage: UNK
     Route: 048
  31. FEBURIC [Concomitant]
     Dosage: UNK
     Route: 048

REACTIONS (7)
  - Renal impairment [Not Recovered/Not Resolved]
  - Epistaxis [Recovering/Resolving]
  - Constipation [Recovered/Resolved]
  - Bronchitis [Recovered/Resolved]
  - Enterocolitis viral [Recovered/Resolved]
  - Bronchitis [Recovering/Resolving]
  - Anaemia [Recovering/Resolving]
